FAERS Safety Report 17007544 (Version 1)
Quarter: 2019Q4

REPORT INFORMATION
  Report Type: Report from Study
  Country: KR (occurrence: KR)
  Receive Date: 20191108
  Receipt Date: 20191108
  Transmission Date: 20200122
  Serious: Yes (Hospitalization)
  Sender: FDA-Public Use
  Company Number: KR-IPSEN BIOPHARMACEUTICALS, INC.-2019-20794

PATIENT
  Age: 70 Year
  Sex: Female

DRUGS (4)
  1. CALCIUM FOLINATE [Suspect]
     Active Substance: LEUCOVORIN CALCIUM
     Indication: BILIARY CANCER METASTATIC
     Route: 065
     Dates: start: 20190618, end: 20191015
  2. ONIVYDE [Suspect]
     Active Substance: IRINOTECAN HYDROCHLORIDE
     Indication: BILIARY CANCER METASTATIC
     Dosage: FREQUENCY NOT REPORTED
     Route: 065
     Dates: start: 20190618, end: 20191015
  3. 5-FU [Suspect]
     Active Substance: FLUOROURACIL
     Indication: BILIARY CANCER METASTATIC
     Dosage: DURATION: 3 MONTHS 28 DAYS
     Route: 065
     Dates: start: 20190618, end: 20191015
  4. LEUCOVORIN. [Concomitant]
     Active Substance: LEUCOVORIN
     Dates: start: 20190618, end: 20191015

REACTIONS (1)
  - Pancytopenia [Recovered/Resolved]

NARRATIVE: CASE EVENT DATE: 20191026
